FAERS Safety Report 9184972 (Version 1)
Quarter: 2013Q1

REPORT INFORMATION
  Report Type: Spontaneous
  Country: TR (occurrence: TR)
  Receive Date: 20130325
  Receipt Date: 20130325
  Transmission Date: 20140127
  Serious: Yes (Hospitalization)
  Sender: FDA-Public Use
  Company Number: TR-MYLANLABS-2013S1005440

PATIENT
  Age: 78 Year
  Sex: Male

DRUGS (1)
  1. FENTANYL TRANSDERMAL SYSTEM [Suspect]
     Indication: ANALGESIC THERAPY
     Dosage: 100 MICROG/HOUR, PATCH REPLACED EVERY 3 DAYS
     Route: 062

REACTIONS (7)
  - Atrioventricular block complete [Recovered/Resolved]
  - Dyspnoea [None]
  - Blood pressure decreased [None]
  - Coronary artery stenosis [None]
  - Mitral valve incompetence [None]
  - Tricuspid valve incompetence [None]
  - Coronary artery occlusion [None]
